FAERS Safety Report 18680874 (Version 1)
Quarter: 2020Q4

REPORT INFORMATION
  Report Type: Spontaneous
  Country: US (occurrence: US)
  Receive Date: 20201228
  Receipt Date: 20201228
  Transmission Date: 20210114
  Serious: Yes (Hospitalization)
  Sender: FDA-Public Use
  Company Number: None

PATIENT
  Age: 73 Year
  Sex: Male
  Weight: 97.07 kg

DRUGS (2)
  1. APIXABAN (APIXABAN 5MG TAB) [Suspect]
     Active Substance: APIXABAN
     Indication: ATRIAL FIBRILLATION
     Route: 048
     Dates: start: 20201204
  2. CLOPIDOGREL (CLOPIDOGREL BISULFATE 75MG TAB) [Suspect]
     Active Substance: CLOPIDOGREL BISULFATE
     Indication: SURGERY
     Route: 048
     Dates: start: 20170902

REACTIONS (10)
  - Haemorrhage [None]
  - Faeces discoloured [None]
  - Fatigue [None]
  - Blood creatinine increased [None]
  - Dizziness [None]
  - Haemoglobin decreased [None]
  - Cardiac failure congestive [None]
  - Anaemia [None]
  - Gastric haemorrhage [None]
  - Abdominal pain [None]

NARRATIVE: CASE EVENT DATE: 20191211
